FAERS Safety Report 6852460-4 (Version None)
Quarter: 2010Q3

REPORT INFORMATION
  Report Type: 
  Country: None (occurrence: None)
  Receive Date: 20100717
  Receipt Date: 20071114
  Transmission Date: 20110219
  Serious: No
  Sender: FDA-Public Use
  Company Number: US-PFIZER INC-2007098290

PATIENT
  Sex: Male
  Weight: 72.727 kg

DRUGS (3)
  1. CHANTIX [Suspect]
     Indication: SMOKING CESSATION THERAPY
     Route: 048
     Dates: start: 20070101
  2. NEXIUM [Concomitant]
  3. ALBUTEROL [Concomitant]
     Route: 055

REACTIONS (3)
  - DYSPEPSIA [None]
  - INCORRECT DRUG ADMINISTRATION DURATION [None]
  - VOMITING [None]
